FAERS Safety Report 8831589 (Version 1)
Quarter: 2012Q4

REPORT INFORMATION
  Report Type: 
  Country: BR (occurrence: BR)
  Receive Date: 20121009
  Receipt Date: 20121009
  Transmission Date: 20130627
  Serious: Yes (Hospitalization, Other)
  Sender: FDA-Public Use
  Company Number: BR-GLAXOSMITHKLINE-A0992209A

PATIENT
  Age: 15 Year
  Sex: Female
  Weight: 60 kg

DRUGS (5)
  1. CLAVULIN [Suspect]
     Indication: SUICIDE ATTEMPT
     Dosage: 6TAB Single dose
     Route: 048
     Dates: start: 20120830, end: 20120830
  2. CIPROFLOXACIN [Suspect]
     Indication: SUICIDE ATTEMPT
     Dosage: 4TABS Single dose
     Route: 048
     Dates: start: 20120830, end: 20120830
  3. ALENDRONATE [Suspect]
     Indication: SUICIDE ATTEMPT
     Dosage: 2TAB Single dose
     Route: 048
     Dates: start: 20120830, end: 20120830
  4. CALCIUM CARBONATE [Suspect]
     Indication: SUICIDE ATTEMPT
     Dosage: 4TAB Single dose
     Route: 048
     Dates: start: 20120830, end: 20120830
  5. SERTRALINE HYDROCHLORIDE [Suspect]
     Indication: SUICIDE ATTEMPT
     Dosage: 6TAB Single dose
     Route: 048
     Dates: start: 20120830, end: 20120830

REACTIONS (2)
  - Suicide attempt [Recovered/Resolved]
  - Intentional overdose [Recovered/Resolved]
